FAERS Safety Report 7554617-6 (Version None)
Quarter: 2011Q2

REPORT INFORMATION
  Report Type: 
  Country: None (occurrence: None)
  Receive Date: 20110617
  Receipt Date: 20110607
  Transmission Date: 20111010
  Serious: Yes (Life-Threatening, Hospitalization)
  Sender: FDA-Public Use
  Company Number: DE-ROCHE-783320

PATIENT
  Sex: Male
  Weight: 73 kg

DRUGS (1)
  1. TRASTUZUMAB [Suspect]
     Indication: METASTATIC GASTRIC CANCER
     Dosage: LAST GIVEN APPLICATION WAS ON 10 MAY 2011.
     Route: 042

REACTIONS (1)
  - SEPSIS [None]
